FAERS Safety Report 25802301 (Version 1)
Quarter: 2025Q3

REPORT INFORMATION
  Report Type: Spontaneous
  Country: US (occurrence: None)
  Receive Date: 20250912
  Receipt Date: 20250912
  Transmission Date: 20251021
  Serious: Yes (Hospitalization, Other)
  Sender: FDA-CTU
  Company Number: None

PATIENT
  Age: 79 Year
  Sex: Male

DRUGS (11)
  1. BOTOX [Suspect]
     Active Substance: ONABOTULINUMTOXINA
     Indication: Migraine
     Route: 030
     Dates: start: 20250327
  2. TADALAFIL 5 MG TABLETS [Concomitant]
  3. THYROID (ARMOUR) [Concomitant]
  4. QULIPTA 60MG TABLETS [Concomitant]
  5. AIMOVIG [Concomitant]
     Active Substance: ERENUMAB-AOOE
  6. MONTELUKAST SODIUM [Concomitant]
     Active Substance: MONTELUKAST SODIUM
  7. QUETIAPINE 200MG TABLETS [Concomitant]
  8. TESTOSTERONE 1.62% GEL (60 PUMPS) [Concomitant]
  9. MESALAMINE 1.2GM TABLETS [Concomitant]
  10. ROSUVASTATIN [Concomitant]
     Active Substance: ROSUVASTATIN
  11. EZETIMIBE [Concomitant]
     Active Substance: EZETIMIBE

REACTIONS (5)
  - Animal attack [None]
  - Skeletal injury [None]
  - Limb injury [None]
  - Pulmonary embolism [None]
  - Coagulopathy [None]

NARRATIVE: CASE EVENT DATE: 20250901
